FAERS Safety Report 13516260 (Version 1)
Quarter: 2017Q2

REPORT INFORMATION
  Report Type: Spontaneous
  Country: FR (occurrence: FR)
  Receive Date: 20170505
  Receipt Date: 20170505
  Transmission Date: 20170830
  Serious: Yes (Life-Threatening, Other)
  Sender: FDA-Public Use
  Company Number: FR-BRISTOL-MYERS SQUIBB COMPANY-BMS-2017-035028

PATIENT
  Age: 66 Year
  Sex: Male

DRUGS (4)
  1. BICNU [Suspect]
     Active Substance: CARMUSTINE
     Indication: B-CELL LYMPHOMA STAGE IV
     Dosage: 600 MG, UNK
     Route: 042
     Dates: start: 20161209
  2. ALKERAN [Suspect]
     Active Substance: MELPHALAN
     Indication: B-CELL LYMPHOMA STAGE IV
     Dosage: 300 MG, UNK
     Route: 042
     Dates: start: 20161214
  3. CYTARABINE KABI [Suspect]
     Active Substance: CYTARABINE
     Indication: B-CELL LYMPHOMA STAGE IV
     Dosage: 800 MG, QD
     Route: 042
     Dates: start: 20161210, end: 20161213
  4. ETOPOPHOS [Suspect]
     Active Substance: ETOPOSIDE PHOSPHATE
     Indication: B-CELL LYMPHOMA STAGE IV
     Dosage: 400 MG, QD
     Route: 042
     Dates: start: 20161210, end: 20161213

REACTIONS (6)
  - Respiratory distress [Recovered/Resolved]
  - Lung disorder [Recovered/Resolved]
  - Infectious colitis [Recovered/Resolved]
  - Febrile bone marrow aplasia [Recovered/Resolved]
  - Atrial fibrillation [Recovered/Resolved]
  - Packed red blood cell transfusion [Unknown]

NARRATIVE: CASE EVENT DATE: 20161223
